FAERS Safety Report 11355957 (Version 1)
Quarter: 2015Q3

REPORT INFORMATION
  Report Type: Report from Study
  Country: US (occurrence: US)
  Receive Date: 20150807
  Receipt Date: 20150807
  Transmission Date: 20151125
  Serious: Yes (Other)
  Sender: FDA-Public Use
  Company Number: US-SANOFI-AVENTIS-2013SA093260

PATIENT
  Age: 49 Year
  Sex: Female
  Weight: 86.2 kg

DRUGS (7)
  1. CELEXA [Concomitant]
     Active Substance: CITALOPRAM HYDROBROMIDE
     Indication: DEPRESSION
     Route: 065
  2. LEVOTHYROXINE. [Concomitant]
     Active Substance: LEVOTHYROXINE
     Indication: HYPOTHYROIDISM
     Dosage: DOSE ADMINISTERED: 20 MG 6 DAYS PER WEEK.
  3. AUBAGIO [Suspect]
     Active Substance: TERIFLUNOMIDE
     Indication: MULTIPLE SCLEROSIS
     Route: 048
     Dates: start: 20131001
  4. LEVOTHYROXINE. [Concomitant]
     Active Substance: LEVOTHYROXINE
     Indication: HYPOTHYROIDISM
     Dosage: DOSE ADMINISTERED: 20 MG 6 DAYS PER WEEK.
  5. SIMVASTATIN. [Concomitant]
     Active Substance: SIMVASTATIN
     Indication: BLOOD CHOLESTEROL INCREASED
     Route: 065
  6. WELLBUTRIN [Concomitant]
     Active Substance: BUPROPION HYDROCHLORIDE
     Indication: ANXIETY
     Route: 065
     Dates: start: 201309
  7. AUBAGIO [Suspect]
     Active Substance: TERIFLUNOMIDE
     Indication: MULTIPLE SCLEROSIS
     Route: 048
     Dates: start: 20130722

REACTIONS (12)
  - Multiple sclerosis relapse [Recovering/Resolving]
  - Nail disorder [Not Recovered/Not Resolved]
  - Hypertension [Unknown]
  - Faecal incontinence [Recovered/Resolved]
  - Alopecia [Recovered/Resolved]
  - Urinary tract infection [Recovering/Resolving]
  - Fatigue [Recovered/Resolved]
  - Erythema [Not Recovered/Not Resolved]
  - Muscle twitching [Not Recovered/Not Resolved]
  - Paraesthesia [Recovered/Resolved]
  - Diarrhoea [Unknown]
  - Hypoaesthesia [Not Recovered/Not Resolved]

NARRATIVE: CASE EVENT DATE: 201308
